FAERS Safety Report 17244748 (Version 1)
Quarter: 2020Q1

REPORT INFORMATION
  Report Type: Spontaneous
  Country: JP (occurrence: JP)
  Receive Date: 20200107
  Receipt Date: 20200107
  Transmission Date: 20200409
  Serious: Yes (Hospitalization)
  Sender: FDA-Public Use
  Company Number: JP-TAKEDA-2019TUS074116

PATIENT
  Age: 75 Year
  Sex: Male

DRUGS (29)
  1. CALONAL [Concomitant]
     Active Substance: ACETAMINOPHEN
     Indication: BACK PAIN
     Dosage: 300 MILLIGRAM, TID
     Route: 048
     Dates: start: 20190828
  2. TAKECAB [Concomitant]
     Active Substance: VONOPRAZAN FUMURATE
     Indication: PROPHYLAXIS AGAINST GASTROINTESTINAL ULCER
     Dosage: 10 MILLIGRAM
     Route: 048
     Dates: start: 20190920
  3. LINACLOTIDE [Concomitant]
     Active Substance: LINACLOTIDE
     Indication: CONSTIPATION
     Dosage: 0.25 MILLIGRAM
     Dates: start: 20191004
  4. DOVOBET [Concomitant]
     Active Substance: BETAMETHASONE\CALCIPOTRIENE
     Indication: PSORIASIS
     Dosage: UNK
     Route: 061
     Dates: start: 20190508
  5. NALDEMEDINE TOSILATE [Concomitant]
     Active Substance: NALDEMEDINE TOSYLATE
     Dosage: 0.2 MILLIGRAM
     Dates: start: 20190918
  6. DAIPHEN [Concomitant]
     Active Substance: SULFAMETHOXAZOLE\TRIMETHOPRIM
     Indication: ANTIFUNGAL PROPHYLAXIS
     Dosage: UNK
     Route: 048
     Dates: start: 20190920
  7. KETOPROFEN. [Concomitant]
     Active Substance: KETOPROFEN
     Indication: BACK PAIN
     Dosage: 40 MILLIGRAM
     Route: 050
     Dates: start: 20190912
  8. VELCADE [Suspect]
     Active Substance: BORTEZOMIB
     Indication: PLASMA CELL MYELOMA
     Dosage: 1 MILLIGRAM/SQ. METER
     Route: 042
     Dates: start: 20190917
  9. TRAMAL [Concomitant]
     Active Substance: TRAMADOL
     Dosage: 25 MILLIGRAM, BID
     Route: 048
     Dates: start: 20190828
  10. LANSOPRAZOLE. [Concomitant]
     Active Substance: LANSOPRAZOLE
     Indication: PROPHYLAXIS AGAINST GASTROINTESTINAL ULCER
     Dosage: 30 MILLIGRAM
     Route: 048
     Dates: start: 20190828
  11. AMITIZA [Concomitant]
     Active Substance: LUBIPROSTONE
     Indication: CONSTIPATION
     Dosage: 24 MICROGRAM
     Route: 048
     Dates: start: 20190920
  12. OXYCODONE [Concomitant]
     Active Substance: OXYCODONE
     Indication: BACK PAIN
     Dosage: 20 MILLIGRAM, BID
     Route: 048
     Dates: start: 20190917
  13. GENINAX [Concomitant]
     Active Substance: GARENOXACIN MESYLATE
     Indication: PNEUMONIA
     Dosage: 400 MILLIGRAM, QD
     Route: 048
     Dates: start: 20191008, end: 20191014
  14. DEXAMETHASONE. [Suspect]
     Active Substance: DEXAMETHASONE
     Indication: PLASMA CELL MYELOMA
     Dosage: 8 MILLIGRAM
     Route: 048
     Dates: start: 20190917
  15. TRAMADOL HYDROCHLORIDE. [Concomitant]
     Active Substance: TRAMADOL HYDROCHLORIDE
     Indication: BACK PAIN
     Dosage: 100 MILLIGRAM
     Route: 048
     Dates: start: 20190903
  16. FLUCONAZOLE. [Concomitant]
     Active Substance: FLUCONAZOLE
     Indication: ANTIFUNGAL PROPHYLAXIS
     Dosage: 100 MILLIGRAM
     Route: 048
     Dates: start: 20190919
  17. MAGMITT [Concomitant]
     Active Substance: MAGNESIUM OXIDE
     Indication: CONSTIPATION PROPHYLAXIS
     Dosage: 300 MILLIGRAM, BID
     Route: 048
     Dates: start: 20190905
  18. SENNOSIDE                          /00571902/ [Concomitant]
     Active Substance: SENNOSIDES A AND B
     Indication: CONSTIPATION
     Dosage: 12 MILLIGRAM
     Route: 048
     Dates: start: 20190905
  19. SODIUM PICOSULFATE [Concomitant]
     Active Substance: SODIUM PICOSULFATE
     Indication: CONSTIPATION
     Dosage: 1.34 MILLILITER
     Route: 048
     Dates: start: 20190902
  20. BAYASPIRINA [Concomitant]
     Active Substance: ASPIRIN
     Indication: THROMBOSIS PROPHYLAXIS
     Dosage: 100 MILLIGRAM
     Route: 048
     Dates: start: 20190918
  21. GENINAX [Concomitant]
     Active Substance: GARENOXACIN MESYLATE
     Dosage: 200 MILLIGRAM
     Route: 048
     Dates: start: 20191118, end: 20191128
  22. SODIUM CHLORIDE. [Concomitant]
     Active Substance: SODIUM CHLORIDE
     Indication: HYPONATRAEMIA
     Dosage: 2 GRAM
     Route: 048
     Dates: start: 20190928, end: 20191022
  23. LENALIDOMIDE [Suspect]
     Active Substance: LENALIDOMIDE
     Indication: PLASMA CELL MYELOMA
     Dosage: 5 MILLIGRAM
     Route: 048
     Dates: start: 20190917
  24. PANTETHINE [Concomitant]
     Active Substance: PANTETHINE
     Indication: CONSTIPATION PROPHYLAXIS
     Dosage: 100 MILLIGRAM, BID
     Route: 048
     Dates: start: 20190905
  25. FEBURIC [Concomitant]
     Active Substance: FEBUXOSTAT
     Indication: HYPERURICAEMIA
     Dosage: 20 MILLIGRAM
     Route: 048
     Dates: start: 20190908
  26. ACICLOVIR [Concomitant]
     Active Substance: ACYCLOVIR
     Indication: ANTIFUNGAL PROPHYLAXIS
     Dosage: 200 MILLIGRAM
     Route: 048
     Dates: start: 20190909
  27. FENTANYL CITRATE. [Concomitant]
     Active Substance: FENTANYL CITRATE
     Indication: BACK PAIN
     Dosage: 2 MILLIGRAM
     Route: 050
     Dates: start: 20190922
  28. HEMOPORISON [Concomitant]
     Indication: HAEMORRHOIDS
     Dosage: UNK
     Dates: start: 20191029, end: 20191104
  29. URSODEOXYCHOLIC ACID [Concomitant]
     Active Substance: URSODIOL
     Indication: ALCOHOLIC LIVER DISEASE
     Dosage: 600 MILLIGRAM
     Route: 048
     Dates: start: 20190918

REACTIONS (1)
  - Pneumonia bacterial [Recovered/Resolved]

NARRATIVE: CASE EVENT DATE: 20191216
